FAERS Safety Report 11403342 (Version 1)
Quarter: 2015Q3

REPORT INFORMATION
  Report Type: Spontaneous
  Country: US (occurrence: None)
  Receive Date: 20150820
  Receipt Date: 20150820
  Transmission Date: 20151125
  Serious: Yes (Hospitalization)
  Sender: FDA-Public Use
  Company Number: None

PATIENT
  Age: 70 Year
  Sex: Male
  Weight: 66.6 kg

DRUGS (2)
  1. NAPROXEN. [Suspect]
     Active Substance: NAPROXEN
     Indication: AGITATION
     Route: 048
     Dates: start: 20150119, end: 20150809
  2. NAPROXEN. [Suspect]
     Active Substance: NAPROXEN
     Indication: PAIN
     Route: 048
     Dates: start: 20150119, end: 20150809

REACTIONS (8)
  - Abdominal pain upper [None]
  - Drug eruption [None]
  - Gastritis [None]
  - Helicobacter test positive [None]
  - Peptic ulcer [None]
  - Infection [None]
  - Erythema multiforme [None]
  - Neoplasm [None]

NARRATIVE: CASE EVENT DATE: 20150809
